FAERS Safety Report 4369660-8 (Version None)
Quarter: 2004Q2

REPORT INFORMATION
  Report Type: 
  Country: None (occurrence: None)
  Receive Date: 20040527
  Receipt Date: 20040511
  Transmission Date: 20050107
  Serious: Yes (Hospitalization)
  Sender: FDA-Public Use
  Company Number: 230008M04ESP

PATIENT
  Age: 26 Year
  Sex: Female

DRUGS (1)
  1. REBIF [Suspect]
     Indication: MULTIPLE SCLEROSIS
     Dosage: 22 MCG, 3 IN WEEKS, 3 IN 1 WEEKS, SUBCUTANEOUS
     Route: 058
     Dates: start: 20021101, end: 20030228

REACTIONS (5)
  - ABORTION SPONTANEOUS [None]
  - CHONDROSARCOMA [None]
  - COMPLICATIONS OF MATERNAL EXPOSURE TO THERAPEUTIC DRUGS [None]
  - MATERNAL DRUGS AFFECTING FOETUS [None]
  - PREGNANCY [None]
